FAERS Safety Report 20134304 (Version 14)
Quarter: 2023Q2

REPORT INFORMATION
  Report Type: Spontaneous
  Country: PL (occurrence: PL)
  Receive Date: 20211201
  Receipt Date: 20230519
  Transmission Date: 20230722
  Serious: No
  Sender: FDA-Public Use
  Company Number: PL-NOVARTISPH-NVSC2021PL262823

PATIENT
  Age: 31 Year
  Sex: Male

DRUGS (11)
  1. ESCITALOPRAM OXALATE [Interacting]
     Active Substance: ESCITALOPRAM OXALATE
     Indication: Depression
     Dosage: 10 MG, QD
     Route: 065
  2. CLARITHROMYCIN [Interacting]
     Active Substance: CLARITHROMYCIN
     Indication: Cough
     Dosage: 1000 MG, QD (500 MG, BID)
     Route: 048
  3. OMEPRAZOLE [Interacting]
     Active Substance: OMEPRAZOLE
     Indication: Product used for unknown indication
     Dosage: 40 MG, QD (20 MG, BID)
     Route: 065
  4. DEXTROMETHORPHAN HYDROBROMIDE [Interacting]
     Active Substance: DEXTROMETHORPHAN HYDROBROMIDE
     Indication: Cough
     Dosage: 90 MG, QD (30 MG, TID)
     Route: 048
  5. DEXTROMETHORPHAN HYDROBROMIDE [Interacting]
     Active Substance: DEXTROMETHORPHAN HYDROBROMIDE
     Indication: Antitussive therapy
  6. CODEINE CAMPHORSULFONATE [Concomitant]
     Active Substance: CODEINE CAMPHORSULFONATE
     Indication: Cough
     Dosage: 3 DOSAGE FORM, QD (1 DF, TID)
     Route: 065
  7. SULFOGAIACOL [Concomitant]
     Active Substance: SULFOGAIACOL
     Indication: Cough
     Dosage: 3 DOSAGE FORM, QD (1 DF, TID)
     Route: 065
  8. AMLODIPINE [Concomitant]
     Active Substance: AMLODIPINE BESYLATE
     Indication: Hypertension
     Dosage: 10 MG, QD
     Route: 065
  9. PERINDOPRIL [Concomitant]
     Active Substance: PERINDOPRIL
     Indication: Hypertension
     Dosage: 10 MG, QD
     Route: 065
  10. METHYLPREDNISOLONE ACEPONATE [Concomitant]
     Active Substance: METHYLPREDNISOLONE ACEPONATE
     Indication: Product used for unknown indication
     Dosage: 16 MG, QD (8 MG, BID)
     Route: 065
  11. AMOXICILLIN\CLAVULANIC ACID [Concomitant]
     Active Substance: AMOXICILLIN\CLAVULANIC ACID
     Indication: Product used for unknown indication
     Dosage: 2000 MG, QD (1000 MG, BID)
     Route: 065

REACTIONS (5)
  - Cough [Recovered/Resolved]
  - Drug interaction [Recovered/Resolved]
  - Hyperhidrosis [Recovered/Resolved]
  - Condition aggravated [Recovered/Resolved]
  - Drug level increased [Unknown]

NARRATIVE: CASE EVENT DATE: 20210101
